FAERS Safety Report 7965958-2 (Version None)
Quarter: 2011Q4

REPORT INFORMATION
  Report Type: 
  Country: None (occurrence: None)
  Receive Date: 20111208
  Receipt Date: 20111206
  Transmission Date: 20120403
  Serious: No
  Sender: FDA-Public Use
  Company Number: US-PFIZER INC-2011297969

PATIENT
  Sex: Female
  Weight: 59 kg

DRUGS (2)
  1. LYRICA [Suspect]
     Dosage: TWO TIMES A DAY
     Route: 048
     Dates: start: 20111115, end: 20111201
  2. OXYCODONE [Concomitant]
     Dosage: UNK

REACTIONS (3)
  - RASH [None]
  - BURNING SENSATION [None]
  - BLISTER [None]
